FAERS Safety Report 13414279 (Version 1)
Quarter: 2017Q2

REPORT INFORMATION
  Report Type: Spontaneous
  Country: US (occurrence: US)
  Receive Date: 20170407
  Receipt Date: 20170407
  Transmission Date: 20170830
  Serious: Yes (Hospitalization, Other)
  Sender: FDA-Public Use
  Company Number: US-MYLANLABS-2017M1021414

PATIENT

DRUGS (2)
  1. PIPERACILLIN/TAZOBACTAM [Suspect]
     Active Substance: PIPERACILLIN SODIUM\TAZOBACTAM SODIUM
     Indication: CHOLECYSTITIS
     Route: 042
  2. AMOXICILLIN. [Suspect]
     Active Substance: AMOXICILLIN
     Indication: UPPER RESPIRATORY TRACT INFECTION
     Route: 065

REACTIONS (3)
  - Cholecystitis [None]
  - Drug-induced liver injury [Recovering/Resolving]
  - Hepatitis cholestatic [None]
